FAERS Safety Report 24785328 (Version 2)
Quarter: 2025Q1

REPORT INFORMATION
  Report Type: Spontaneous
  Country: FR (occurrence: FR)
  Receive Date: 20241228
  Receipt Date: 20250116
  Transmission Date: 20250409
  Serious: Yes (Hospitalization)
  Sender: TEVA
  Company Number: None

PATIENT
  Age: 69 Year
  Sex: Female
  Weight: 62 kg

DRUGS (4)
  1. ALPRAZOLAM [Suspect]
     Active Substance: ALPRAZOLAM
     Indication: Poisoning deliberate
     Route: 048
     Dates: start: 20240711, end: 20240711
  2. BISOPROLOL [Suspect]
     Active Substance: BISOPROLOL
     Indication: Poisoning deliberate
     Route: 048
     Dates: start: 20240711, end: 20240711
  3. DULOXETINE [Suspect]
     Active Substance: DULOXETINE
     Indication: Poisoning deliberate
     Route: 048
     Dates: start: 20240711, end: 20240711
  4. ROPINIROLE [Suspect]
     Active Substance: ROPINIROLE
     Indication: Poisoning deliberate
     Route: 048
     Dates: start: 20240711, end: 20240711

REACTIONS (1)
  - Coma [Recovered/Resolved]

NARRATIVE: CASE EVENT DATE: 20240711
